FAERS Safety Report 21090039 (Version 18)
Quarter: 2022Q4

REPORT INFORMATION
  Report Type: Report from Study
  Country: US (occurrence: US)
  Receive Date: 20220715
  Receipt Date: 20221228
  Transmission Date: 20230112
  Serious: Yes (Hospitalization, Other)
  Sender: FDA-Public Use
  Company Number: US-TAKEDA-2020TUS059591

PATIENT
  Age: 9 Year
  Sex: Male
  Weight: 30 kg

DRUGS (24)
  1. IDURSULFASE [Suspect]
     Active Substance: IDURSULFASE
     Indication: Mucopolysaccharidosis II
     Dosage: 12 MILLIGRAM, 1/WEEK
     Route: 042
     Dates: start: 20200616
  2. IDURSULFASE [Suspect]
     Active Substance: IDURSULFASE
     Indication: Mucopolysaccharidosis I
     Dosage: 18 MILLIGRAM, 1/WEEK
     Route: 042
     Dates: start: 20200616
  3. IDURSULFASE [Suspect]
     Active Substance: IDURSULFASE
     Dosage: 12 MILLIGRAM, 1/WEEK
     Route: 042
     Dates: start: 20200618
  4. IDURSULFASE [Suspect]
     Active Substance: IDURSULFASE
     Dosage: 18 GRAM, 1/WEEK
     Route: 042
     Dates: start: 20200618
  5. IDURSULFASE [Suspect]
     Active Substance: IDURSULFASE
     Dosage: 18 MILLIGRAM, 1/WEEK
     Route: 042
     Dates: start: 20200714
  6. HEPARIN [Concomitant]
     Active Substance: HEPARIN SODIUM
     Route: 065
  7. DIPHENHYDRAMINE HYDROCHLORIDE [Concomitant]
     Active Substance: DIPHENHYDRAMINE HYDROCHLORIDE
  8. EPINEPHRINE [Concomitant]
     Active Substance: EPINEPHRINE
     Route: 065
  9. SODIUM CHLORIDE [Concomitant]
     Active Substance: SODIUM CHLORIDE
     Route: 065
  10. FLUTICASONE PROPIONATE [Concomitant]
     Active Substance: FLUTICASONE PROPIONATE
  11. GABAPENTIN [Concomitant]
     Active Substance: GABAPENTIN
  12. HYDROCORTISONE [Concomitant]
     Active Substance: HYDROCORTISONE
     Route: 065
  13. ACETAMINOPHEN [Concomitant]
     Active Substance: ACETAMINOPHEN
     Route: 048
  14. SODIUM CHLORIDE [Concomitant]
     Active Substance: SODIUM CHLORIDE
     Route: 065
  15. LIDOCAINE [Concomitant]
     Active Substance: LIDOCAINE
     Route: 065
  16. FAMOTIDINE [Concomitant]
     Active Substance: FAMOTIDINE
     Route: 065
  17. VITAMIN C [Concomitant]
     Active Substance: ASCORBIC ACID
     Route: 065
  18. CANNABIDIOL\HERBALS [Concomitant]
     Active Substance: CANNABIDIOL\HERBALS
     Route: 065
  19. HERBALS [Concomitant]
     Active Substance: HERBALS
     Route: 065
  20. DIPHENHYDRAMINE [Concomitant]
     Active Substance: DIPHENHYDRAMINE
     Route: 065
  21. LORATADINE [Concomitant]
     Active Substance: LORATADINE
     Route: 065
  22. DIAZEPAM [Concomitant]
     Active Substance: DIAZEPAM
  23. PROPIONATE [Concomitant]
  24. ELAPRASE [Concomitant]
     Active Substance: IDURSULFASE

REACTIONS (43)
  - Device related sepsis [Unknown]
  - Sepsis [Unknown]
  - Post procedural infection [Unknown]
  - COVID-19 [Unknown]
  - Retching [Unknown]
  - Toe walking [Recovering/Resolving]
  - Tendonitis [Unknown]
  - Complex regional pain syndrome [Unknown]
  - Rhinovirus infection [Unknown]
  - Enterovirus infection [Unknown]
  - Pyrexia [Unknown]
  - Nasal congestion [Unknown]
  - Rhinorrhoea [Unknown]
  - Malaise [Unknown]
  - Infusion site extravasation [Unknown]
  - Tympanic membrane perforation [Unknown]
  - Nasopharyngitis [Unknown]
  - Lethargy [Unknown]
  - Weight increased [Unknown]
  - Peripheral coldness [Unknown]
  - Streptococcal infection [Unknown]
  - Urticaria papular [Unknown]
  - Arthropod bite [Unknown]
  - Tooth loss [Unknown]
  - Decreased appetite [Unknown]
  - Infusion site swelling [Recovered/Resolved]
  - Peripheral coldness [Unknown]
  - Nerve compression [Unknown]
  - Peripheral swelling [Unknown]
  - Agitation [Unknown]
  - Weight bearing difficulty [Unknown]
  - Skin discolouration [Unknown]
  - Pain in extremity [Unknown]
  - Hypersensitivity [Unknown]
  - Chills [Unknown]
  - Ear infection [Recovered/Resolved]
  - Vomiting [Unknown]
  - Diarrhoea [Recovered/Resolved]
  - Rash [Unknown]
  - Dyspnoea [Unknown]
  - Cough [Unknown]
  - Erythema [Unknown]
  - Product dose omission issue [Unknown]

NARRATIVE: CASE EVENT DATE: 20220717
